FAERS Safety Report 4911420-0 (Version None)
Quarter: 2006Q1

REPORT INFORMATION
  Report Type: 
  Country: None (occurrence: None)
  Receive Date: 20060213
  Receipt Date: 20060131
  Transmission Date: 20060701
  Serious: Yes (Hospitalization, Other)
  Sender: FDA-Public Use
  Company Number: 2006016448

PATIENT
  Age: 57 Year
  Sex: Male
  Weight: 60 kg

DRUGS (2)
  1. NARDIL [Suspect]
     Indication: ANXIETY DISORDER
     Dosage: 15 MG, ORAL
     Route: 048
     Dates: end: 20060101
  2. NARDIL [Suspect]
     Indication: PANIC DISORDER
     Dosage: 15 MG, ORAL
     Route: 048
     Dates: end: 20060101

REACTIONS (12)
  - ABNORMAL DREAMS [None]
  - ALCOHOLIC [None]
  - COMPUTERISED TOMOGRAM ABNORMAL [None]
  - CONTUSION [None]
  - DEPRESSED LEVEL OF CONSCIOUSNESS [None]
  - DRUG WITHDRAWAL SYNDROME [None]
  - EUPHORIC MOOD [None]
  - FALL [None]
  - FEELING JITTERY [None]
  - LOSS OF EMPLOYMENT [None]
  - MARITAL PROBLEM [None]
  - NIGHTMARE [None]
